FAERS Safety Report 7469800-8 (Version None)
Quarter: 2011Q2

REPORT INFORMATION
  Report Type: 
  Country: None (occurrence: None)
  Receive Date: 20110510
  Receipt Date: 20110502
  Transmission Date: 20111010
  Serious: Yes (Hospitalization)
  Sender: FDA-Public Use
  Company Number: US-US-EMD SERONO, INC.-7057710

PATIENT
  Sex: Female

DRUGS (1)
  1. REBIF [Suspect]
     Indication: MULTIPLE SCLEROSIS
     Route: 058
     Dates: start: 20090706

REACTIONS (6)
  - MYALGIA [None]
  - FALL [None]
  - OEDEMA PERIPHERAL [None]
  - BACK INJURY [None]
  - MUSCULOSKELETAL STIFFNESS [None]
  - MOBILITY DECREASED [None]
